FAERS Safety Report 7831527-8 (Version None)
Quarter: 2011Q4

REPORT INFORMATION
  Report Type: 
  Country: None (occurrence: None)
  Receive Date: 20111021
  Receipt Date: 20111013
  Transmission Date: 20120403
  Serious: Yes (Other)
  Sender: FDA-Public Use
  Company Number: PHHY2011DE90251

PATIENT
  Sex: Male

DRUGS (11)
  1. AMLODIPINE [Concomitant]
     Dosage: UNK
     Route: 048
  2. VALSARTAN [Suspect]
     Dosage: UNK
     Route: 048
     Dates: start: 20110101, end: 20110101
  3. EXFORGE HCT [Suspect]
     Dosage: 1 DF, QD, 320 MG VALS,10 MG AMLO AND 25 MG HYDRO,IN THE MORNING
     Route: 048
     Dates: start: 20110501
  4. HYDROCHLOROTHIAZIDE [Suspect]
     Dosage: UNK
     Route: 048
     Dates: start: 20110101
  5. HYDROCHLOROTHIAZIDE [Suspect]
     Dosage: UNK
     Route: 048
  6. VALSARTAN [Suspect]
     Dosage: UNK
     Route: 048
  7. AMLODIPINE [Concomitant]
     Dosage: UNK
     Route: 048
     Dates: start: 20110101, end: 20110101
  8. VALSARTAN [Suspect]
     Dosage: UNK
     Route: 048
     Dates: start: 20110501
  9. EXFORGE HCT [Suspect]
     Dosage: 1 DF, QD,320 MG VALS,10 MG AMLO AND 25 MG HYDRO
     Route: 048
     Dates: start: 20111001
  10. HYDROCHLOROTHIAZIDE [Suspect]
     Dosage: UNK
     Route: 048
     Dates: end: 20110501
  11. AMLODIPINE [Concomitant]
     Dosage: UNK
     Route: 048
     Dates: end: 20110501

REACTIONS (1)
  - BLOOD PRESSURE SYSTOLIC INCREASED [None]
